FAERS Safety Report 8005024-3 (Version None)
Quarter: 2011Q4

REPORT INFORMATION
  Report Type: 
  Country: None (occurrence: None)
  Receive Date: 20111223
  Receipt Date: 20111216
  Transmission Date: 20120403
  Serious: Yes (Hospitalization)
  Sender: FDA-Public Use
  Company Number: AU-SANOFI-AVENTIS-2011SA083191

PATIENT
  Age: 47 Year
  Sex: Female
  Weight: 73 kg

DRUGS (3)
  1. EFFEXOR [Concomitant]
  2. BLINDED THERAPY [Suspect]
     Route: 042
     Dates: start: 20111129, end: 20111129
  3. DOCETAXEL [Suspect]
     Route: 041
     Dates: start: 20111129, end: 20111129

REACTIONS (1)
  - CHOLECYSTITIS [None]
